APPROVED DRUG PRODUCT: DARVON-N W/ ASA
Active Ingredient: ASPIRIN; PROPOXYPHENE NAPSYLATE
Strength: 325MG;100MG
Dosage Form/Route: TABLET;ORAL
Application: N016863 | Product #001
Applicant: AAIPHARMA LLC
Approved: Approved Prior to Jan 1, 1982 | RLD: No | RS: No | Type: DISCN